FAERS Safety Report 8122834-2 (Version None)
Quarter: 2012Q1

REPORT INFORMATION
  Report Type: 
  Country: None (occurrence: None)
  Receive Date: 20120208
  Receipt Date: 20120203
  Transmission Date: 20120608
  Serious: Yes (Hospitalization)
  Sender: FDA-Public Use
  Company Number: IT-PFIZER INC-2012031418

PATIENT
  Age: 35 Year
  Sex: Female

DRUGS (1)
  1. EFFEXOR XR [Suspect]
     Dosage: 750 MG, SINGLE
     Route: 048
     Dates: start: 20120106, end: 20120106

REACTIONS (3)
  - SUICIDE ATTEMPT [None]
  - PRESYNCOPE [None]
  - ASTHENIA [None]
